FAERS Safety Report 4899224-9 (Version None)
Quarter: 2006Q1

REPORT INFORMATION
  Report Type: 
  Country: None (occurrence: None)
  Receive Date: 20060202
  Receipt Date: 20060123
  Transmission Date: 20060701
  Serious: Yes (Hospitalization)
  Sender: FDA-Public Use
  Company Number: AU-ROCHE-433237

PATIENT
  Age: 49 Year
  Sex: Male

DRUGS (10)
  1. VALIUM [Suspect]
     Indication: DRUG USE FOR UNKNOWN INDICATION
     Dosage: DAILY.
     Route: 065
     Dates: start: 20041110
  2. VALIUM [Suspect]
     Dosage: OVERDOSE DOSAGE UNSPECIFIED.
     Route: 065
  3. PEG-INTERFERON A-2A (RO 25-8310) [Suspect]
     Dosage: SHORT TERM.
     Route: 058
     Dates: start: 20041110
  4. RIBAVIRIN [Suspect]
     Dosage: SHORT TERM.
     Route: 048
     Dates: start: 20041110
  5. LAMIVUDINE [Concomitant]
  6. LEXAPRO [Concomitant]
  7. KALETRA [Concomitant]
  8. TENOFOVIR DISOPROXYL FUMARATE [Concomitant]
  9. KAPANOL [Concomitant]
  10. COLOXYL WITH SENNA [Concomitant]

REACTIONS (3)
  - OVERDOSE [None]
  - PULMONARY EMBOLISM [None]
  - SUICIDE ATTEMPT [None]
